FAERS Safety Report 5805736-3 (Version None)
Quarter: 2008Q3

REPORT INFORMATION
  Report Type: 
  Country: None (occurrence: None)
  Receive Date: 20080710
  Receipt Date: 20080701
  Transmission Date: 20090109
  Serious: Yes (Other)
  Sender: FDA-Public Use
  Company Number: US-BAXTER-2008BH006476

PATIENT
  Age: 83 Year
  Sex: Male
  Weight: 75 kg

DRUGS (13)
  1. BUMINATE 5% [Suspect]
     Indication: CARDIAC OPERATION
     Dosage: DOSE UNIT:CUBIC CENTIMETER
     Route: 042
     Dates: start: 20080616, end: 20080616
  2. BUMINATE 5% [Suspect]
     Indication: DRUG USE FOR UNKNOWN INDICATION
     Dosage: DOSE UNIT:CUBIC CENTIMETER
     Route: 042
     Dates: start: 20080616, end: 20080616
  3. BEHRING ALBURX 5 [Suspect]
     Indication: CARDIAC OPERATION
     Dosage: DOSE UNIT:CUBIC CENTIMETER
     Route: 042
     Dates: start: 20080616, end: 20080616
  4. BEHRING ALBURX 5 [Suspect]
     Indication: DRUG USE FOR UNKNOWN INDICATION
     Dosage: DOSE UNIT:CUBIC CENTIMETER
     Route: 042
     Dates: start: 20080616, end: 20080616
  5. FLOMAX [Concomitant]
     Indication: DRUG USE FOR UNKNOWN INDICATION
     Dosage: DOSE UNIT:UNKNOWN
     Route: 048
  6. LISINOPRIL [Concomitant]
     Indication: DRUG USE FOR UNKNOWN INDICATION
     Route: 048
  7. NEXIUM [Concomitant]
     Indication: DRUG USE FOR UNKNOWN INDICATION
     Route: 048
  8. NORVASC [Concomitant]
     Indication: DRUG USE FOR UNKNOWN INDICATION
     Route: 065
  9. NIACIN [Concomitant]
     Indication: DRUG USE FOR UNKNOWN INDICATION
     Route: 065
  10. GLUCOSAMINE [Concomitant]
     Indication: DRUG USE FOR UNKNOWN INDICATION
     Route: 065
  11. FORANE [Concomitant]
     Indication: DRUG USE FOR UNKNOWN INDICATION
     Dosage: DOSE UNIT:UNKNOWN
     Route: 065
  12. FENTANYL [Concomitant]
     Indication: DRUG USE FOR UNKNOWN INDICATION
     Dosage: DOSE UNIT:UNKNOWN
     Route: 065
  13. INSULIN [Concomitant]
     Indication: DRUG USE FOR UNKNOWN INDICATION
     Dosage: DOSE UNIT:UNKNOWN
     Route: 065

REACTIONS (3)
  - BLOOD PRESSURE DECREASED [None]
  - CIRCULATORY COLLAPSE [None]
  - VASCULAR RESISTANCE SYSTEMIC DECREASED [None]
